FAERS Safety Report 21968957 (Version 1)
Quarter: 2023Q1

REPORT INFORMATION
  Report Type: Spontaneous
  Country: US (occurrence: None)
  Receive Date: 20230207
  Receipt Date: 20230207
  Transmission Date: 20230418
  Serious: No
  Sender: FDA-Public Use
  Company Number: None

PATIENT
  Age: 46 Year
  Sex: Female
  Weight: 60.75 kg

DRUGS (6)
  1. MOUNJARO [Suspect]
     Active Substance: TIRZEPATIDE
     Indication: Diabetes mellitus
     Dates: start: 20221231, end: 20230204
  2. TRULICITY [Concomitant]
     Active Substance: DULAGLUTIDE
  3. INVOKANA [Concomitant]
     Active Substance: CANAGLIFLOZIN
  4. PRANDIN [Concomitant]
     Active Substance: REPAGLINIDE
  5. LIBRE 3 [Concomitant]
  6. ATORVASTATIN [Concomitant]
     Active Substance: ATORVASTATIN

REACTIONS (2)
  - Hyperaesthesia [None]
  - Pain of skin [None]

NARRATIVE: CASE EVENT DATE: 20230101
